FAERS Safety Report 7761744-7 (Version None)
Quarter: 2011Q3

REPORT INFORMATION
  Report Type: 
  Country: None (occurrence: None)
  Receive Date: 20110920
  Receipt Date: 20101123
  Transmission Date: 20111222
  Serious: No
  Sender: FDA-Public Use
  Company Number: US-BAYER-2011-078087

PATIENT
  Sex: Male

DRUGS (1)
  1. ALEVE (CAPLET) [Suspect]
     Indication: BACK PAIN
     Dosage: BEEN TAKING FRO 2 WEEKS
     Route: 048
     Dates: start: 20101101

REACTIONS (1)
  - INCORRECT DOSE ADMINISTERED [None]
